FAERS Safety Report 4344307-5 (Version None)
Quarter: 2004Q2

REPORT INFORMATION
  Report Type: 
  Country: None (occurrence: None)
  Receive Date: 20040419
  Receipt Date: 20040402
  Transmission Date: 20050107
  Serious: Yes (Death, Hospitalization)
  Sender: FDA-Public Use
  Company Number: F01200400179

PATIENT
  Age: 69 Year
  Sex: Female

DRUGS (32)
  1. OXALIPLATIN [Suspect]
     Indication: COLON CANCER
     Dosage: 234 MG Q3W INTRAVENOUS NOS
     Route: 042
     Dates: start: 20040102, end: 20040102
  2. CAPECITABINE [Suspect]
     Dosage: 1800 MG TWICE A DAY  PER ORAL FROM D1 TO D15 ORAL
     Route: 048
     Dates: start: 20040102, end: 20040123
  3. PROZAC [Concomitant]
  4. DETROL [Concomitant]
  5. ZANAFLEX [Concomitant]
  6. PHENERGAN [Concomitant]
  7. LUMIGAN [Concomitant]
  8. DORZOLAMIDE HYDROCHLORIDE [Concomitant]
  9. TYLENOL [Concomitant]
  10. MAALOX [Concomitant]
  11. HEPARIN FLUSH (HEPARIN SODIUM) [Concomitant]
  12. PROMETHAZINE [Concomitant]
  13. LORAZEPAM [Concomitant]
  14. ZOFRAN [Concomitant]
  15. MILES MAGIC MOUTHWASH SUSPENSION [Concomitant]
  16. LOVENOX [Concomitant]
  17. VITAMIN K TAB [Concomitant]
  18. SODIUM PHOSPHATE (SODIUM PHOSPHATE DIBASIC) [Concomitant]
  19. POTASSIUM PHOSPHATE (POTASSIUM PHOSPHATE DIBASIC) [Concomitant]
  20. INSULIN [Concomitant]
  21. ALBUMIN (HUMAN) [Concomitant]
  22. LASIX [Concomitant]
  23. IV FLUIDS [Concomitant]
  24. RED BLOOD CELLS [Concomitant]
  25. CEFEPIME [Concomitant]
  26. LEUKINE [Concomitant]
  27. IMODIUM [Concomitant]
  28. PEPCID [Concomitant]
  29. MUCLOX (FAMOTIDINE) [Concomitant]
  30. SANDOSTATIN [Concomitant]
  31. LOMOTIL [Concomitant]
  32. COSOPT [Concomitant]

REACTIONS (10)
  - ASCITES [None]
  - DRUG TOXICITY [None]
  - ENTERITIS [None]
  - LOBAR PNEUMONIA [None]
  - NEUTROPENIA [None]
  - RESPIRATORY FAILURE [None]
  - SEPSIS [None]
  - SMALL INTESTINAL OBSTRUCTION [None]
  - WHITE BLOOD CELL COUNT DECREASED [None]
  - WHITE BLOOD CELL COUNT INCREASED [None]
